FAERS Safety Report 9652965 (Version 1)
Quarter: 2013Q4

REPORT INFORMATION
  Report Type: Spontaneous
  Country: US (occurrence: US)
  Receive Date: 20131029
  Receipt Date: 20131029
  Transmission Date: 20140711
  Serious: No
  Sender: FDA-Public Use
  Company Number: US-BIOGENIDEC-2013BI077738

PATIENT
  Age: 63 Year
  Sex: Female
  Weight: 72 kg

DRUGS (17)
  1. TECFIDERA [Suspect]
     Indication: MULTIPLE SCLEROSIS
     Route: 048
  2. TECFIDERA [Suspect]
     Indication: MULTIPLE SCLEROSIS
     Route: 048
     Dates: start: 2013
  3. BACLOFEN [Concomitant]
  4. FLOMAX [Concomitant]
  5. ASA [Concomitant]
  6. POTASSIUM [Concomitant]
  7. VITAMIN B COMPLEX [Concomitant]
  8. NORVASC [Concomitant]
  9. COZAAT [Concomitant]
  10. HYDROCHLOROTHIAZIDE [Concomitant]
  11. MORPHINE SULFATE [Concomitant]
  12. MIRALAX [Concomitant]
  13. COLACE [Concomitant]
  14. DEXILANT [Concomitant]
  15. VITAMIN D [Concomitant]
  16. ADDERALL [Concomitant]
  17. AMPYRA [Concomitant]

REACTIONS (2)
  - Feeling hot [Recovered/Resolved]
  - Prescribed underdose [Unknown]
